FAERS Safety Report 24961879 (Version 1)
Quarter: 2025Q1

REPORT INFORMATION
  Report Type: Spontaneous
  Country: US (occurrence: None)
  Receive Date: 20250212
  Receipt Date: 20250212
  Transmission Date: 20250409
  Serious: Yes (Life-Threatening, Hospitalization)
  Sender: FDA-CTU
  Company Number: None

PATIENT
  Age: 68 Year
  Sex: Female
  Weight: 74.25 kg

DRUGS (13)
  1. GAMUNEX-C [Suspect]
     Active Substance: HUMAN IMMUNOGLOBULIN G
     Route: 042
     Dates: start: 20250211
  2. FEXOFENADINE [Concomitant]
     Active Substance: FEXOFENADINE HYDROCHLORIDE
  3. PREGABALIN [Concomitant]
     Active Substance: PREGABALIN
  4. NALTREXONE [Concomitant]
     Active Substance: NALTREXONE
  5. FISH OIL [Concomitant]
     Active Substance: FISH OIL
  6. VITAMIN D3 [Concomitant]
     Active Substance: CHOLECALCIFEROL
  7. QUERCETIN [Concomitant]
     Active Substance: QUERCETIN
  8. GLUTATHIONE [Concomitant]
     Active Substance: GLUTATHIONE
  9. ADEMETIONINE [Concomitant]
     Active Substance: ADEMETIONINE
  10. HERBALS\TURMERIC [Concomitant]
     Active Substance: HERBALS\TURMERIC
  11. BENFOTIAMINE [Concomitant]
     Active Substance: BENFOTIAMINE
  12. ALPHA LIPOIC ACID [Concomitant]
     Active Substance: .ALPHA.-LIPOIC ACID
  13. ACETYLCARNITINE [Concomitant]
     Active Substance: ACETYLCARNITINE

REACTIONS (4)
  - Infusion related reaction [None]
  - Anaphylactic reaction [None]
  - Rash [None]
  - Pruritus [None]

NARRATIVE: CASE EVENT DATE: 20250211
